FAERS Safety Report 6274446-3 (Version None)
Quarter: 2009Q3

REPORT INFORMATION
  Report Type: 
  Country: None (occurrence: None)
  Receive Date: 20090720
  Receipt Date: 20090707
  Transmission Date: 20100115
  Serious: Yes (Other)
  Sender: FDA-Public Use
  Company Number: GB-MYLANLABS-2009S1012085

PATIENT
  Age: 45 Year
  Sex: Female

DRUGS (4)
  1. FLUCONAZOLE [Suspect]
     Indication: VULVOVAGINAL CANDIDIASIS
     Route: 048
  2. AMPHOTERICIN B [Suspect]
     Indication: VULVOVAGINAL CANDIDIASIS
  3. FLUCYTOSINE [Suspect]
     Indication: VULVOVAGINAL CANDIDIASIS
     Route: 061
  4. BORIC ACID [Concomitant]
     Indication: DRUG USE FOR UNKNOWN INDICATION
     Route: 067

REACTIONS (2)
  - DRUG INEFFECTIVE [None]
  - MULTIPLE-DRUG RESISTANCE [None]
